FAERS Safety Report 18656982 (Version 1)
Quarter: 2020Q4

REPORT INFORMATION
  Report Type: Report from Study
  Country: US (occurrence: US)
  Receive Date: 20201224
  Receipt Date: 20201224
  Transmission Date: 20210114
  Serious: Yes (Hospitalization, Other)
  Sender: FDA-Public Use
  Company Number: US-ACADIA PHARMACEUTICALS INC.-ACA-2020-PIM-004059

PATIENT
  Age: 64 Year
  Sex: Male

DRUGS (21)
  1. ENALAPRIL [Concomitant]
     Active Substance: ENALAPRIL
  2. FISH OIL [Concomitant]
     Active Substance: FISH OIL
  3. LOVASTATIN. [Concomitant]
     Active Substance: LOVASTATIN
  4. PRAMIPEXOLE. [Concomitant]
     Active Substance: PRAMIPEXOLE
  5. ASPIRIN. [Concomitant]
     Active Substance: ASPIRIN
  6. FLUOXETINE [Concomitant]
     Active Substance: FLUOXETINE HYDROCHLORIDE
  7. VITAMIN B12 [VITAMIN B12 NOS] [Concomitant]
     Active Substance: CYANOCOBALAMIN
  8. METOPROLOL. [Concomitant]
     Active Substance: METOPROLOL
  9. RYTARY [Concomitant]
     Active Substance: CARBIDOPA\LEVODOPA
  10. AMOXICILLIN. [Concomitant]
     Active Substance: AMOXICILLIN
  11. AMANTADINE. [Concomitant]
     Active Substance: AMANTADINE HYDROCHLORIDE
  12. CHLORTHALIDONE. [Concomitant]
     Active Substance: CHLORTHALIDONE
  13. FUROSEMIDE. [Concomitant]
     Active Substance: FUROSEMIDE
  14. ISOSORBIDE MONONITRATE. [Concomitant]
     Active Substance: ISOSORBIDE MONONITRATE
  15. METFORMIN [Concomitant]
     Active Substance: METFORMIN HYDROCHLORIDE
  16. NUPLAZID [Suspect]
     Active Substance: PIMAVANSERIN TARTRATE
     Indication: PARKINSON^S DISEASE
     Dosage: 34 MILLIGRAM, QD
     Route: 048
     Dates: start: 20200114, end: 2020
  17. CARBIDOPA/LEVODOPA [Concomitant]
     Active Substance: CARBIDOPA\LEVODOPA
  18. HUMALOG [Concomitant]
     Active Substance: INSULIN LISPRO
  19. TRULICITY [Concomitant]
     Active Substance: DULAGLUTIDE
  20. NUPLAZID [Suspect]
     Active Substance: PIMAVANSERIN TARTRATE
     Dosage: 34 MILLIGRAM, QD
     Route: 048
     Dates: start: 2020
  21. POTASSIUM IODIDE. [Concomitant]
     Active Substance: POTASSIUM IODIDE

REACTIONS (3)
  - Arthritis infective [Not Recovered/Not Resolved]
  - Dizziness [Not Recovered/Not Resolved]
  - Product dose omission issue [Unknown]

NARRATIVE: CASE EVENT DATE: 2020
